FAERS Safety Report 26102187 (Version 1)
Quarter: 2025Q4

REPORT INFORMATION
  Report Type: Spontaneous
  Country: US (occurrence: None)
  Receive Date: 20251124
  Receipt Date: 20251124
  Transmission Date: 20260118
  Serious: Yes (unspecified)
  Sender: FDA-CTU
  Company Number: None

PATIENT
  Age: 76 Year
  Sex: Female

DRUGS (2)
  1. ACETIC ACID\WATER [Suspect]
     Active Substance: ACETIC ACID\WATER
  2. ACETIC ACID\WATER [Suspect]
     Active Substance: ACETIC ACID\WATER

REACTIONS (5)
  - Product dispensing error [None]
  - Incorrect dose administered [None]
  - Chemical burn of skin [None]
  - Product label confusion [None]
  - Product packaging confusion [None]

NARRATIVE: CASE EVENT DATE: 20250929
